FAERS Safety Report 4404353-X (Version None)
Quarter: 2004Q3

REPORT INFORMATION
  Report Type: 
  Country: None (occurrence: None)
  Receive Date: 20040720
  Receipt Date: 20040707
  Transmission Date: 20050211
  Serious: Yes (Hospitalization, Other)
  Sender: FDA-Public Use
  Company Number: 2004045480

PATIENT
  Sex: Male

DRUGS (2)
  1. LITHIUM (LITHIUM) [Suspect]
     Indication: BIPOLAR DISORDER
     Dates: start: 19770101, end: 19960701
  2. LITHIUM (LITHIUM) [Suspect]
     Indication: MANIA
     Dates: start: 19770101, end: 19960701

REACTIONS (14)
  - AGITATION [None]
  - BLOOD PARATHYROID HORMONE INCREASED [None]
  - CALCIUM IONISED INCREASED [None]
  - HYPERCALCAEMIA [None]
  - HYPERPLASIA [None]
  - HYPERTENSION [None]
  - HYPOMANIA [None]
  - MANIA [None]
  - PARATHYROID DISORDER [None]
  - RASH [None]
  - REFUSAL OF TREATMENT BY PATIENT [None]
  - SINOATRIAL BLOCK [None]
  - SINUS BRADYCARDIA [None]
  - URINE CALCIUM DECREASED [None]
